FAERS Safety Report 7977341-4 (Version None)
Quarter: 2011Q4

REPORT INFORMATION
  Report Type: 
  Country: None (occurrence: None)
  Receive Date: 20111213
  Receipt Date: 20111110
  Transmission Date: 20120403
  Serious: No
  Sender: FDA-Public Use
  Company Number: US-AMGEN-USASP2011040526

PATIENT
  Age: 55 Year
  Sex: Female

DRUGS (1)
  1. ENBREL [Suspect]
     Indication: PSORIATIC ARTHROPATHY
     Dosage: 50 MG, QWK
     Dates: start: 20110521, end: 20111023

REACTIONS (12)
  - INJECTION SITE WARMTH [None]
  - HYPERHIDROSIS [None]
  - INJECTION SITE REACTION [None]
  - ERYTHEMA [None]
  - INJECTION SITE ERYTHEMA [None]
  - PAIN IN EXTREMITY [None]
  - FATIGUE [None]
  - PYREXIA [None]
  - PRODUCTIVE COUGH [None]
  - NIGHT SWEATS [None]
  - OEDEMA PERIPHERAL [None]
  - SINUS CONGESTION [None]
